FAERS Safety Report 4328513-1 (Version None)
Quarter: 2004Q1

REPORT INFORMATION
  Report Type: 
  Country: None (occurrence: None)
  Receive Date: 20040331
  Receipt Date: 20030321
  Transmission Date: 20041129
  Serious: Yes (Death, Hospitalization, Disabling)
  Sender: FDA-Public Use
  Company Number: US-MERCK-0303USA02180

PATIENT
  Age: 53 Year
  Sex: Female
  Weight: 78 kg

DRUGS (7)
  1. ASPIRIN [Concomitant]
     Route: 065
  2. CIPRO [Concomitant]
     Route: 065
     Dates: start: 19990712, end: 19990718
  3. HEPARIN [Concomitant]
     Route: 065
  4. INSULIN [Concomitant]
     Route: 065
  5. GLUCOPHAGE [Concomitant]
     Route: 065
  6. VIOXX [Suspect]
     Indication: ARTHRITIS
     Route: 048
     Dates: start: 19990712
  7. VIOXX [Suspect]
     Route: 048
     Dates: start: 20010620

REACTIONS (40)
  - ABDOMINAL PAIN UPPER [None]
  - CARDIOMYOPATHY [None]
  - CEREBRAL ATROPHY [None]
  - CEREBRAL INFARCTION [None]
  - CEREBRAL ISCHAEMIA [None]
  - CEREBROVASCULAR ACCIDENT [None]
  - DEEP VEIN THROMBOSIS [None]
  - DEHYDRATION [None]
  - DIABETES MELLITUS [None]
  - DIABETES MELLITUS INADEQUATE CONTROL [None]
  - EAR DISORDER [None]
  - EPISTAXIS [None]
  - FALL [None]
  - HEARING IMPAIRED [None]
  - HEART RATE INCREASED [None]
  - HOARSENESS [None]
  - HYPERCOAGULATION [None]
  - HYPOCHROMIC ANAEMIA [None]
  - IRON DEFICIENCY ANAEMIA [None]
  - LYMPHADENOPATHY [None]
  - MELAENA [None]
  - MICTURITION URGENCY [None]
  - NOCTURIA [None]
  - OEDEMA [None]
  - OESTROGEN DEFICIENCY [None]
  - PAIN [None]
  - PELVIC ORGAN INJURY [None]
  - PLEURAL EFFUSION [None]
  - PNEUMONIA [None]
  - POLLAKIURIA [None]
  - PULMONARY HYPERTENSION [None]
  - RENAL FAILURE [None]
  - RESPIRATORY RATE INCREASED [None]
  - ROAD TRAFFIC ACCIDENT [None]
  - ROTATOR CUFF SYNDROME [None]
  - SKIN ULCER [None]
  - TRIGGER FINGER [None]
  - URGE INCONTINENCE [None]
  - URINARY TRACT INFECTION [None]
  - VENTRICULAR HYPOKINESIA [None]
